FAERS Safety Report 9742724 (Version 1)
Quarter: 2013Q4

REPORT INFORMATION
  Report Type: Spontaneous
  Country: US (occurrence: US)
  Receive Date: 20131210
  Receipt Date: 20131210
  Transmission Date: 20140711
  Serious: No
  Sender: FDA-Public Use
  Company Number: US-GILEAD-2009-0025803

PATIENT
  Sex: Female
  Weight: 81.65 kg

DRUGS (10)
  1. LETAIRIS [Suspect]
     Indication: PULMONARY ARTERIAL HYPERTENSION
     Route: 048
     Dates: start: 20091110, end: 20091202
  2. CARVEDIOL [Concomitant]
  3. FUROSEMIDE [Concomitant]
  4. JANUVIA [Concomitant]
  5. CILOSTAZOL [Concomitant]
  6. AMLODIPINE BESYLATE [Concomitant]
  7. LOVASTIN [Concomitant]
  8. LEVOTHYROXINE [Concomitant]
  9. PLAVIX [Concomitant]
  10. FOLIC ACID [Concomitant]

REACTIONS (1)
  - Oedema peripheral [Unknown]
